FAERS Safety Report 5700593-8 (Version None)
Quarter: 2008Q2

REPORT INFORMATION
  Report Type: 
  Country: None (occurrence: None)
  Receive Date: 20080410
  Receipt Date: 20080331
  Transmission Date: 20081010
  Serious: Yes (Other)
  Sender: FDA-Public Use
  Company Number: CH-BAYER-200815863GPV

PATIENT
  Age: 32 Year
  Sex: Female

DRUGS (2)
  1. ALEVE [Suspect]
     Indication: MUSCULOSKELETAL PAIN
     Dosage: UNIT DOSE: 220 MG
     Route: 048
     Dates: start: 20080328, end: 20080329
  2. IBUPROFEN [Concomitant]
     Indication: MUSCULOSKELETAL PAIN
     Dosage: UNIT DOSE: 200 MG
     Route: 048
     Dates: start: 20080328, end: 20080328

REACTIONS (1)
  - SWOLLEN TONGUE [None]
